FAERS Safety Report 7792212-4 (Version None)
Quarter: 2011Q4

REPORT INFORMATION
  Report Type: 
  Country: None (occurrence: None)
  Receive Date: 20111003
  Receipt Date: 20111003
  Transmission Date: 20120403
  Serious: Yes (Life-Threatening, Hospitalization, Other)
  Sender: FDA-Public Use
  Company Number: None

PATIENT
  Age: 62 Year
  Sex: Male
  Weight: 87.543 kg

DRUGS (2)
  1. TOPAMAX [Concomitant]
     Indication: MIGRAINE
     Dosage: 100MG
     Route: 048
     Dates: start: 20110413, end: 20111029
  2. DEPAKOTE ER [Suspect]
     Indication: BIPOLAR I DISORDER
     Dosage: 1000MG.
     Route: 048
     Dates: start: 19910123, end: 20111002

REACTIONS (6)
  - GAIT DISTURBANCE [None]
  - HYPOPHAGIA [None]
  - VISUAL IMPAIRMENT [None]
  - WEIGHT DECREASED [None]
  - MIGRAINE [None]
  - INSOMNIA [None]
